FAERS Safety Report 10174045 (Version 1)
Quarter: 2014Q2

REPORT INFORMATION
  Report Type: Spontaneous
  Country: US (occurrence: US)
  Receive Date: 20140515
  Receipt Date: 20140515
  Transmission Date: 20141212
  Serious: No
  Sender: FDA-Public Use
  Company Number: US-GILEAD-2014-0102379

PATIENT
  Sex: Female

DRUGS (1)
  1. LETAIRIS [Suspect]
     Indication: PRODUCT USED FOR UNKNOWN INDICATION
     Dosage: 10 MG, QD
     Route: 065
     Dates: start: 20121126

REACTIONS (6)
  - Chest pain [Unknown]
  - Feeling abnormal [Unknown]
  - Memory impairment [Unknown]
  - Decreased appetite [Unknown]
  - Middle insomnia [Unknown]
  - Dyspnoea exertional [Unknown]
